FAERS Safety Report 6508271-2 (Version None)
Quarter: 2009Q4

REPORT INFORMATION
  Report Type: 
  Country: None (occurrence: None)
  Receive Date: 20091221
  Receipt Date: 20081105
  Transmission Date: 20100525
  Serious: No
  Sender: FDA-Public Use
  Company Number: US-ASTRAZENECA-2008UW24784

PATIENT
  Age: 72 Year
  Sex: Female

DRUGS (2)
  1. CRESTOR [Suspect]
     Dosage: 20 MG
     Route: 048
  2. CRESTOR [Suspect]
     Dosage: 10 MG
     Route: 048

REACTIONS (2)
  - BACK PAIN [None]
  - DRUG INEFFECTIVE [None]
